FAERS Safety Report 23822265 (Version 1)
Quarter: 2024Q2

REPORT INFORMATION
  Report Type: Spontaneous
  Country: GB (occurrence: GB)
  Receive Date: 20240506
  Receipt Date: 20240506
  Transmission Date: 20240716
  Serious: Yes (Hospitalization)
  Sender: FDA-Public Use
  Company Number: GB-Accord-421078

PATIENT
  Age: 78 Year
  Sex: Male

DRUGS (1)
  1. PIRFENIDONE [Suspect]
     Active Substance: PIRFENIDONE
     Indication: Product used for unknown indication
     Dosage: 801 MG, TID (3 PER DAY)
     Route: 065
     Dates: start: 202308

REACTIONS (4)
  - Pneumonia [Unknown]
  - Rib fracture [Unknown]
  - Traumatic lung injury [Unknown]
  - Fall [Unknown]
